FAERS Safety Report 13989304 (Version 3)
Quarter: 2017Q4

REPORT INFORMATION
  Report Type: Report from Study
  Country: IT (occurrence: IT)
  Receive Date: 20170920
  Receipt Date: 20171012
  Transmission Date: 20180321
  Serious: Yes (Hospitalization)
  Sender: FDA-Public Use
  Company Number: IT-ROCHE-1993398

PATIENT
  Age: 70 Year
  Sex: Male
  Weight: 80 kg

DRUGS (3)
  1. CARBOPLATIN. [Suspect]
     Active Substance: CARBOPLATIN
     Indication: TRANSITIONAL CELL CARCINOMA
     Dosage: DOSE OF LAST CARBOPLATIN ADMINISTERED WAS 323.33 MG ?ON 23/AUG/2017, THE PATIENT RECEIVED MOST RECEN
     Route: 042
     Dates: start: 20170731
  2. GEMCITABINE [Suspect]
     Active Substance: GEMCITABINE\GEMCITABINE HYDROCHLORIDE
     Indication: TRANSITIONAL CELL CARCINOMA
     Dosage: DOSE OF LAST GEMCITABINE ADMINISTERED WAS 1552 MG/M2 ?ON 23/AUG/2017, THE PATIENT RECEIVED MOST RECE
     Route: 042
     Dates: start: 20170731
  3. ATEZOLIZUMAB. [Suspect]
     Active Substance: ATEZOLIZUMAB
     Indication: TRANSITIONAL CELL CARCINOMA
     Dosage: ON 23/AUG/2017, THE PATIENT RECEIVED MOST RECENT DOSE OF BLINDED ATEZOLIZUMAB PRIOR TO SAE ONSET
     Route: 042

REACTIONS (1)
  - Acute coronary syndrome [Not Recovered/Not Resolved]

NARRATIVE: CASE EVENT DATE: 20170906
